FAERS Safety Report 22331932 (Version 2)
Quarter: 2023Q2

REPORT INFORMATION
  Report Type: Spontaneous
  Country: IL (occurrence: IL)
  Receive Date: 20230517
  Receipt Date: 20230626
  Transmission Date: 20230722
  Serious: Yes (Other)
  Sender: FDA-Public Use
  Company Number: IL-PFIZER INC-PV202300084730

PATIENT
  Age: 63 Year

DRUGS (1)
  1. TAFAMIDIS [Suspect]
     Active Substance: TAFAMIDIS
     Indication: Cardiac amyloidosis
     Dosage: UNK
     Dates: start: 201907

REACTIONS (4)
  - Polyneuropathy [Unknown]
  - Burning sensation [Unknown]
  - Pain [Unknown]
  - Hypoaesthesia [Unknown]
